FAERS Safety Report 5768290-0 (Version None)
Quarter: 2008Q2

REPORT INFORMATION
  Report Type: 
  Country: None (occurrence: None)
  Receive Date: 20080609
  Receipt Date: 20080528
  Transmission Date: 20081010
  Serious: Yes (Hospitalization, Other)
  Sender: FDA-Public Use
  Company Number: 028-21880-08041216

PATIENT
  Age: 59 Year
  Sex: Female
  Weight: 62.5 kg

DRUGS (6)
  1. REVLIMID [Suspect]
     Indication: MYELODYSPLASTIC SYNDROME
     Dosage: 5 MG, QD X21 DAYS Q 28 DAYS, ORAL; 10 MG, QD X21 DAYS EVERY 28 DAYS, ORAL; 10 MG, QD X21 DAYS EVERY
     Route: 048
     Dates: start: 20080301, end: 20080318
  2. REVLIMID [Suspect]
     Indication: MYELODYSPLASTIC SYNDROME
     Dosage: 5 MG, QD X21 DAYS Q 28 DAYS, ORAL; 10 MG, QD X21 DAYS EVERY 28 DAYS, ORAL; 10 MG, QD X21 DAYS EVERY
     Route: 048
     Dates: start: 20080403, end: 20080404
  3. REVLIMID [Suspect]
     Indication: MYELODYSPLASTIC SYNDROME
     Dosage: 5 MG, QD X21 DAYS Q 28 DAYS, ORAL; 10 MG, QD X21 DAYS EVERY 28 DAYS, ORAL; 10 MG, QD X21 DAYS EVERY
     Route: 048
     Dates: start: 20080411, end: 20080422
  4. MELPHALAN (MELPHALAN) [Suspect]
     Indication: MYELODYSPLASTIC SYNDROME
     Dosage: 2 MG, DAILY X21 DAYS Q 28 DAYS, ORAL; 2 MG, X21 DAYS Q 28 DAYS; 2 M;G, EVERY 2 DAYS X21 DAYS Q 28 DA
     Route: 048
     Dates: start: 20080301, end: 20080318
  5. MELPHALAN (MELPHALAN) [Suspect]
     Indication: MYELODYSPLASTIC SYNDROME
     Dosage: 2 MG, DAILY X21 DAYS Q 28 DAYS, ORAL; 2 MG, X21 DAYS Q 28 DAYS; 2 M;G, EVERY 2 DAYS X21 DAYS Q 28 DA
     Route: 048
     Dates: start: 20080403, end: 20080404
  6. MELPHALAN (MELPHALAN) [Suspect]
     Indication: MYELODYSPLASTIC SYNDROME
     Dosage: 2 MG, DAILY X21 DAYS Q 28 DAYS, ORAL; 2 MG, X21 DAYS Q 28 DAYS; 2 M;G, EVERY 2 DAYS X21 DAYS Q 28 DA
     Route: 048
     Dates: start: 20080411, end: 20080422

REACTIONS (7)
  - ABDOMINAL PAIN [None]
  - ACUTE MYELOID LEUKAEMIA [None]
  - ENTEROCOLITIS INFECTIOUS [None]
  - FEBRILE NEUTROPENIA [None]
  - HEADACHE [None]
  - SUBDURAL HAEMATOMA [None]
  - THROMBOCYTOPENIA [None]
